FAERS Safety Report 16648266 (Version 1)
Quarter: 2019Q3

REPORT INFORMATION
  Report Type: Spontaneous
  Country: GB (occurrence: GB)
  Receive Date: 20190730
  Receipt Date: 20190730
  Transmission Date: 20191004
  Serious: Yes (Other)
  Sender: FDA-Public Use
  Company Number: GB-MYLANLABS-2019M1071231

PATIENT
  Age: 76 Year
  Sex: Male
  Weight: 68 kg

DRUGS (11)
  1. AMLODIPINE [Concomitant]
     Active Substance: AMLODIPINE BESYLATE
     Dosage: 1 DOSAGE FORM, QD
     Dates: start: 20180504
  2. NITROFURANTOIN. [Concomitant]
     Active Substance: NITROFURANTOIN
     Dosage: 2 DOSAGE FORM, QD
     Dates: start: 20181130, end: 20181205
  3. SILDENAFIL. [Concomitant]
     Active Substance: SILDENAFIL
     Dosage: 1 DOSAGE FORM, QW
     Dates: start: 20180215
  4. HYDROCORTISONE. [Concomitant]
     Active Substance: HYDROCORTISONE
     Dosage: 2 DOSAGE FORM, QD
     Dates: start: 20190208
  5. CLOPIDOGREL [Concomitant]
     Active Substance: CLOPIDOGREL BISULFATE
     Dosage: 1 DOSAGE FORM, QD
     Dates: start: 20180926
  6. COCODAMOL [Concomitant]
     Active Substance: ACETAMINOPHEN\CODEINE PHOSPHATE
     Dosage: TAKE 1 OR 2, 4 TIMES PER DAY.
     Dates: start: 20180215
  7. FINASTERIDE. [Concomitant]
     Active Substance: FINASTERIDE
     Dosage: 1 DOSAGE FORM, QD
     Dates: start: 20181218
  8. EZETIMIBE. [Concomitant]
     Active Substance: EZETIMIBE
     Dosage: 1 DOSAGE FORM, QD
     Dates: start: 20190208
  9. TAMSULOSIN HYDROCHLORIDE. [Concomitant]
     Active Substance: TAMSULOSIN HYDROCHLORIDE
     Dosage: 1 DOSAGE FORM, QD
     Dates: start: 20181218
  10. LAXIDO [Concomitant]
     Active Substance: POLYETHYLENE GLYCOL 3350\POTASSIUM CHLORIDE\SODIUM BICARBONATE\SODIUM CHLORIDE
     Dosage: 1 DOSAGE FORM, PRN
     Dates: start: 20181123, end: 20181223
  11. ROSUVASTATIN. [Suspect]
     Active Substance: ROSUVASTATIN
     Indication: PRODUCT USED FOR UNKNOWN INDICATION
     Dosage: 5 MILLIGRAM, QD
     Route: 065
     Dates: start: 20180321

REACTIONS (1)
  - Neck pain [Recovered/Resolved]
